FAERS Safety Report 9400043 (Version 2)
Quarter: 2013Q3

REPORT INFORMATION
  Report Type: Spontaneous
  Country: PT (occurrence: PT)
  Receive Date: 20130715
  Receipt Date: 20130719
  Transmission Date: 20140515
  Serious: Yes (Death, Hospitalization)
  Sender: FDA-Public Use
  Company Number: PT-PFIZER INC-2013202059

PATIENT
  Age: 40 Year
  Sex: Male

DRUGS (3)
  1. CRIZOTINIB [Suspect]
     Indication: LUNG ADENOCARCINOMA
     Dosage: 400 MG, 1X/DAY
     Route: 048
     Dates: start: 20130617
  2. ENOXAPARIN [Concomitant]
     Dosage: 80 MG, 2X/DAY
  3. MORPHINE [Concomitant]
     Dosage: 10 MG, UNK

REACTIONS (1)
  - Pulmonary embolism [Fatal]
